FAERS Safety Report 10784448 (Version 1)
Quarter: 2015Q1

REPORT INFORMATION
  Report Type: Spontaneous
  Country: US (occurrence: None)
  Receive Date: 20150209
  Receipt Date: 20150209
  Transmission Date: 20150721
  Serious: Yes (Disabling, Other)
  Sender: FDA-Public Use
  Company Number: None

PATIENT
  Age: 65 Year
  Sex: Male
  Weight: 95.71 kg

DRUGS (5)
  1. CYCLOBENAPRINE 300 MG [Suspect]
     Active Substance: CYCLOBENZAPRINE HYDROCHLORIDE
     Indication: INTERVERTEBRAL DISC DEGENERATION
     Dosage: ONCE PER DAY ONCE DAILY TAKEN BY MOUTH
     Route: 048
     Dates: start: 20141101, end: 20150102
  2. CYCLOBENAPRINE 300 MG [Suspect]
     Active Substance: CYCLOBENZAPRINE HYDROCHLORIDE
     Indication: PAIN
     Dosage: ONCE PER DAY ONCE DAILY TAKEN BY MOUTH
     Route: 048
     Dates: start: 20141101, end: 20150102
  3. CYCLOBENAPRINE 300 MG [Suspect]
     Active Substance: CYCLOBENZAPRINE HYDROCHLORIDE
     Indication: SPINAL COLUMN STENOSIS
     Dosage: ONCE PER DAY ONCE DAILY TAKEN BY MOUTH
     Route: 048
     Dates: start: 20141101, end: 20150102
  4. CLONIDINE 0.02 MG [Suspect]
     Active Substance: CLONIDINE
     Indication: HYPERTENSION
     Dosage: ONE WEEK PATCH ONCE A WEEK APPLIED AS MEDICATED PATCH TO SKIN
     Route: 062
     Dates: start: 20150126, end: 20150205
  5. CYCLOBENAPRINE 300 MG [Suspect]
     Active Substance: CYCLOBENZAPRINE HYDROCHLORIDE
     Indication: INTERVERTEBRAL DISC PROTRUSION
     Dosage: ONCE PER DAY ONCE DAILY TAKEN BY MOUTH
     Route: 048
     Dates: start: 20141101, end: 20150102

REACTIONS (5)
  - Lethargy [None]
  - Headache [None]
  - Drug ineffective [None]
  - Photophobia [None]
  - Fatigue [None]

NARRATIVE: CASE EVENT DATE: 20150102
